FAERS Safety Report 6078272-X (Version None)
Quarter: 2009Q1

REPORT INFORMATION
  Report Type: 
  Country: None (occurrence: None)
  Receive Date: 20090213
  Receipt Date: 20090204
  Transmission Date: 20090719
  Serious: Yes (Life-Threatening)
  Sender: FDA-Public Use
  Company Number: US-GENENTECH-276883

PATIENT
  Sex: Male
  Weight: 13.71 kg

DRUGS (4)
  1. SOMATROPIN [Suspect]
     Indication: HYPOTHALAMO-PITUITARY DISORDER
     Dosage: 0.5 MG, QD
     Route: 058
     Dates: start: 20070420
  2. CORTEF [Concomitant]
     Indication: DRUG USE FOR UNKNOWN INDICATION
     Dosage: 1.6 MG, TID
     Route: 048
     Dates: start: 20070522
  3. SYNTHROID [Concomitant]
     Indication: DRUG USE FOR UNKNOWN INDICATION
     Dosage: 50 A?G, 1/WEEK
     Route: 048
     Dates: start: 20070522
  4. SYNTHROID [Concomitant]
     Dosage: 37.5 A?G, QAM
     Route: 048
     Dates: start: 20070522

REACTIONS (1)
  - HYDROCEPHALUS [None]
